FAERS Safety Report 14407108 (Version 3)
Quarter: 2018Q1

REPORT INFORMATION
  Report Type: Spontaneous
  Country: BR (occurrence: BR)
  Receive Date: 20180118
  Receipt Date: 20180226
  Transmission Date: 20180509
  Serious: Yes (Death, Hospitalization, Other)
  Sender: FDA-Public Use
  Company Number: BR-ALEXION PHARMACEUTICALS INC.-A201800363

PATIENT
  Age: 22 Year
  Sex: Female

DRUGS (2)
  1. SOLIRIS [Suspect]
     Active Substance: ECULIZUMAB
     Dosage: 1200 MG, Q2W
     Route: 065
  2. SOLIRIS [Suspect]
     Active Substance: ECULIZUMAB
     Indication: ATYPICAL HAEMOLYTIC URAEMIC SYNDROME
     Dosage: 1200 MG, QW
     Route: 065
     Dates: start: 20160628

REACTIONS (21)
  - Platelet count increased [Fatal]
  - Cardiac arrest [Fatal]
  - Coagulopathy [Fatal]
  - Infection [Unknown]
  - Septic shock [Fatal]
  - Oedema [Fatal]
  - Pain in extremity [Unknown]
  - Arrhythmia [Fatal]
  - Anuria [Fatal]
  - Pyrexia [Fatal]
  - Arthralgia [Unknown]
  - Incorrect dose administered [Unknown]
  - Coma [Fatal]
  - Hypotension [Fatal]
  - Abdominal distension [Unknown]
  - Gastric haemorrhage [Fatal]
  - Loss of consciousness [Unknown]
  - Unresponsive to stimuli [Fatal]
  - Device related infection [Fatal]
  - Haemorrhage [Fatal]
  - Sepsis [Fatal]

NARRATIVE: CASE EVENT DATE: 201712
